FAERS Safety Report 20592806 (Version 1)
Quarter: 2022Q1

REPORT INFORMATION
  Report Type: Report from Study
  Country: US (occurrence: US)
  Receive Date: 20220315
  Receipt Date: 20220315
  Transmission Date: 20220424
  Serious: Yes (Other)
  Sender: FDA-Public Use
  Company Number: US-ABBVIE-22K-163-4313394-00

PATIENT
  Age: 38 Year
  Sex: Female

DRUGS (1)
  1. LUPRON DEPOT [Suspect]
     Active Substance: LEUPROLIDE ACETATE
     Indication: Product used for unknown indication
     Route: 065

REACTIONS (3)
  - Hysterectomy [Unknown]
  - Endometriosis [Unknown]
  - Pain [Unknown]

NARRATIVE: CASE EVENT DATE: 20211201
